FAERS Safety Report 7359889-9 (Version None)
Quarter: 2011Q1

REPORT INFORMATION
  Report Type: 
  Country: None (occurrence: None)
  Receive Date: 20110317
  Receipt Date: 20110308
  Transmission Date: 20110831
  Serious: Yes (Other)
  Sender: FDA-Public Use
  Company Number: US-ELI_LILLY_AND_COMPANY-US201101000641

PATIENT
  Sex: Female
  Weight: 43.537 kg

DRUGS (9)
  1. FORTEO [Suspect]
     Indication: OSTEOPOROSIS
     Dosage: 20 UG, DAILY (1/D)
     Route: 058
  2. LOVAZA [Concomitant]
  3. ASPIRIN [Concomitant]
  4. ANAPRIL [Concomitant]
  5. MULTI-VITAMIN [Concomitant]
  6. THYROXINE [Concomitant]
  7. METOPROLOL TARTRATE [Concomitant]
  8. FORTEO [Suspect]
     Dosage: 20 UG, DAILY (1/D)
     Route: 058
     Dates: end: 20110128
  9. CALCIUM [Concomitant]

REACTIONS (4)
  - LUNG NEOPLASM MALIGNANT [None]
  - METASTASES TO BONE [None]
  - INFLUENZA [None]
  - LABORATORY TEST ABNORMAL [None]
